FAERS Safety Report 10607328 (Version 1)
Quarter: 2014Q4

REPORT INFORMATION
  Report Type: Spontaneous
  Country: US (occurrence: None)
  Receive Date: 20141124
  Receipt Date: 20141124
  Transmission Date: 20150529
  Serious: Yes (Hospitalization)
  Sender: FDA-Public Use
  Company Number: None

PATIENT
  Age: 82 Year
  Sex: Female
  Weight: 75 kg

DRUGS (19)
  1. HUMALOG [Suspect]
     Active Substance: INSULIN LISPRO
     Indication: DIABETES MELLITUS
     Dosage: SSI
  2. SPIRONOLACTONE. [Concomitant]
     Active Substance: SPIRONOLACTONE
  3. LOPERAMIDE [Concomitant]
     Active Substance: LOPERAMIDE
  4. HYDROXYCHLOROQUINE [Concomitant]
     Active Substance: HYDROXYCHLOROQUINE
  5. NYSTATIN. [Concomitant]
     Active Substance: NYSTATIN
  6. HUMALOG [Concomitant]
     Active Substance: INSULIN LISPRO
  7. FUROSEMIDE. [Concomitant]
     Active Substance: FUROSEMIDE
  8. METHOTREXATE [Concomitant]
     Active Substance: METHOTREXATE
  9. MVI [Concomitant]
     Active Substance: VITAMINS
  10. CARVEDILOL. [Concomitant]
     Active Substance: CARVEDILOL
  11. CALCIUM CARBONATE. [Concomitant]
     Active Substance: CALCIUM CARBONATE
  12. HUMULIN N [Suspect]
     Active Substance: INSULIN HUMAN
     Indication: DIABETES MELLITUS
  13. HUMULIN N [Concomitant]
     Active Substance: INSULIN HUMAN
  14. CHOLESTYRAMINE. [Concomitant]
     Active Substance: CHOLESTYRAMINE
  15. LOVASTATIN. [Concomitant]
     Active Substance: LOVASTATIN
  16. FOLIC ACID. [Concomitant]
     Active Substance: FOLIC ACID
  17. KCL [Concomitant]
     Active Substance: POTASSIUM CHLORIDE
  18. BUMETANIDE. [Concomitant]
     Active Substance: BUMETANIDE
  19. ALLOPURINOL. [Concomitant]
     Active Substance: ALLOPURINOL

REACTIONS (10)
  - Pulmonary congestion [None]
  - Nausea [None]
  - Urinary tract infection [None]
  - Cardiac failure congestive [None]
  - Dehydration [None]
  - Hypophagia [None]
  - Vomiting [None]
  - Asthenia [None]
  - Cough [None]
  - Hypoglycaemia [None]

NARRATIVE: CASE EVENT DATE: 20140422
